FAERS Safety Report 11846308 (Version 2)
Quarter: 2016Q2

REPORT INFORMATION
  Report Type: Spontaneous
  Country: US (occurrence: US)
  Receive Date: 20151217
  Receipt Date: 20160512
  Transmission Date: 20160815
  Serious: No
  Sender: FDA-Public Use
  Company Number: US-B.I. PHARMACEUTICALS,INC./RIDGEFIELD-2015-BI-68444BP

PATIENT
  Age: 80 Year
  Sex: Male
  Weight: 111 kg

DRUGS (8)
  1. SPIRIVA [Suspect]
     Active Substance: TIOTROPIUM BROMIDE MONOHYDRATE
     Indication: PULMONARY HYPERTENSION
     Dosage: 5 MCG
     Route: 055
     Dates: start: 201510
  2. TOPROL XL [Concomitant]
     Active Substance: METOPROLOL SUCCINATE
     Indication: HYPERTENSION
     Route: 048
     Dates: start: 2002
  3. PROAIR HFA [Concomitant]
     Active Substance: ALBUTEROL SULFATE
     Indication: PULMONARY HYPERTENSION
     Dosage: FORMULATION: INHALATION SOLUTION
     Route: 055
     Dates: start: 201510
  4. SIMVASTATIN. [Concomitant]
     Active Substance: SIMVASTATIN
     Indication: BLOOD CHOLESTEROL INCREASED
     Dosage: 40 MG
     Route: 048
  5. SYMBICORT [Concomitant]
     Active Substance: BUDESONIDE\FORMOTEROL FUMARATE DIHYDRATE
     Indication: PULMONARY HYPERTENSION
     Dosage: FORMULATION: INHALATION SOLUTION
     Route: 055
     Dates: start: 201510
  6. LASIX [Concomitant]
     Active Substance: FUROSEMIDE
     Indication: CARDIAC FAILURE CONGESTIVE
     Route: 048
     Dates: start: 2007
  7. VENLAFAXINE [Concomitant]
     Active Substance: VENLAFAXINE HYDROCHLORIDE
     Indication: NEUROTRANSMITTER LEVEL ALTERED
     Route: 048
     Dates: start: 1980
  8. ALDACTONE [Concomitant]
     Active Substance: SPIRONOLACTONE
     Indication: CARDIAC FAILURE CONGESTIVE
     Route: 048
     Dates: start: 2007

REACTIONS (2)
  - Off label use [Unknown]
  - Drug ineffective [Not Recovered/Not Resolved]

NARRATIVE: CASE EVENT DATE: 201510
